FAERS Safety Report 15978427 (Version 1)
Quarter: 2019Q1

REPORT INFORMATION
  Report Type: Spontaneous
  Country: FR (occurrence: FR)
  Receive Date: 20190219
  Receipt Date: 20190219
  Transmission Date: 20190418
  Serious: Yes (Hospitalization)
  Sender: FDA-Public Use
  Company Number: FR-SUN PHARMACEUTICAL INDUSTRIES LTD-2019RR-199244

PATIENT
  Age: 48 Year
  Sex: Female

DRUGS (1)
  1. PARACETAMOL [Suspect]
     Active Substance: ACETAMINOPHEN
     Indication: TOXICITY TO VARIOUS AGENTS
     Dosage: INCONNUE (1) ; IN TOTAL
     Route: 048
     Dates: start: 20180804, end: 20180804

REACTIONS (4)
  - Intentional overdose [Recovered/Resolved]
  - Poisoning deliberate [Recovered/Resolved]
  - Analgesic drug level increased [Recovered/Resolved]
  - Exposure to household chemicals [Recovered/Resolved]

NARRATIVE: CASE EVENT DATE: 20180804
